FAERS Safety Report 13384845 (Version 3)
Quarter: 2017Q2

REPORT INFORMATION
  Report Type: Spontaneous
  Country: NL (occurrence: NL)
  Receive Date: 20170329
  Receipt Date: 20170407
  Transmission Date: 20170830
  Serious: Yes (Life-Threatening, Hospitalization, Other)
  Sender: FDA-Public Use
  Company Number: NL-ELI_LILLY_AND_COMPANY-NL201703010165

PATIENT
  Age: 29 Year
  Sex: Male
  Weight: 75 kg

DRUGS (3)
  1. ZYPADHERA [Suspect]
     Active Substance: OLANZAPINE PAMOATE
     Indication: SCHIZOPHRENIA
  2. ZYPADHERA [Suspect]
     Active Substance: OLANZAPINE PAMOATE
     Indication: HALLUCINATION, AUDITORY
     Dosage: 1 DF, 2/M
     Route: 030
     Dates: start: 20170214
  3. OXAZEPAM. [Concomitant]
     Active Substance: OXAZEPAM
     Dosage: UNK, UNKNOWN
     Route: 065

REACTIONS (14)
  - Hypersomnia [Recovered/Resolved]
  - Vomiting [Recovered/Resolved]
  - Sensory disturbance [Recovered/Resolved]
  - Abnormal behaviour [Recovered/Resolved]
  - Nausea [Recovered/Resolved]
  - Dizziness [Recovered/Resolved]
  - Gait disturbance [Recovered/Resolved]
  - Altered state of consciousness [Recovered/Resolved]
  - Hyperacusis [Recovered/Resolved]
  - Heart rate increased [Recovered/Resolved]
  - Snoring [Recovered/Resolved]
  - Restlessness [Recovered/Resolved]
  - Palpitations [Recovered/Resolved]
  - Hypertension [Recovered/Resolved]

NARRATIVE: CASE EVENT DATE: 20170314
